FAERS Safety Report 6460465-0 (Version None)
Quarter: 2009Q4

REPORT INFORMATION
  Report Type: 
  Country: None (occurrence: None)
  Receive Date: 20091130
  Receipt Date: 20091123
  Transmission Date: 20100525
  Serious: Yes (Death, Other)
  Sender: FDA-Public Use
  Company Number: AU-ROCHE-670309

PATIENT
  Age: 44 Year
  Sex: Male

DRUGS (8)
  1. CAPECITABINE [Suspect]
     Dosage: 14D EVERY 21 D
     Route: 065
     Dates: start: 20060501
  2. CAPECITABINE [Suspect]
     Dosage: 14D EVERY 21 D
     Route: 065
  3. BEVACIZUMAB [Suspect]
     Route: 042
     Dates: start: 20050901
  4. FLUOROURACIL [Suspect]
     Dosage: 9 WEEKLY CYCLES WITH 8 WK ON AND 1 WK OFF, FORM INFUSION
     Route: 065
     Dates: start: 20050901
  5. SANDOSTATIN LAR [Suspect]
     Route: 065
     Dates: start: 20050901
  6. SORAFENIB [Suspect]
     Dosage: 2 MO TRIAL
     Route: 065
     Dates: start: 20080601
  7. MEDROXIPROGESTERONE ACETATE [Suspect]
     Route: 065
     Dates: start: 20080801
  8. EVEROLIMUS [Suspect]
     Route: 065
     Dates: start: 20080801

REACTIONS (8)
  - DEATH [None]
  - DECREASED APPETITE [None]
  - HYPERTENSION [None]
  - MALIGNANT ASCITES [None]
  - MALIGNANT NEOPLASM PROGRESSION [None]
  - PALMAR-PLANTAR ERYTHRODYSAESTHESIA SYNDROME [None]
  - PROTEINURIA [None]
  - WEIGHT DECREASED [None]
